FAERS Safety Report 23045442 (Version 2)
Quarter: 2023Q4

REPORT INFORMATION
  Report Type: Report from Study
  Country: IT (occurrence: IT)
  Receive Date: 20231009
  Receipt Date: 20231017
  Transmission Date: 20240110
  Serious: Yes (Other)
  Sender: FDA-Public Use
  Company Number: None

PATIENT
  Age: 59 Year
  Sex: Female
  Weight: 63 kg

DRUGS (2)
  1. PACLITAXEL [Suspect]
     Active Substance: PACLITAXEL
     Indication: HER2 negative breast cancer
     Dosage: UNK, QW
     Route: 042
     Dates: start: 20230606
  2. PACLITAXEL [Suspect]
     Active Substance: PACLITAXEL
     Dosage: 125 MILLIGRAM, QW (REACTION MANI AFTER)
     Route: 042
     Dates: start: 20230620, end: 20230620

REACTIONS (2)
  - Thrombocytopenia [Recovering/Resolving]
  - Off label use [Recovering/Resolving]

NARRATIVE: CASE EVENT DATE: 20230620
